FAERS Safety Report 4464796-5 (Version None)
Quarter: 2004Q4

REPORT INFORMATION
  Report Type: 
  Country: None (occurrence: None)
  Receive Date: 20041004
  Receipt Date: 20040914
  Transmission Date: 20050328
  Serious: No
  Sender: FDA-Public Use
  Company Number: US-GLAXOSMITHKLINE-A0525599A

PATIENT
  Age: 77 Year
  Sex: Male

DRUGS (5)
  1. COREG [Suspect]
     Indication: HYPERTENSION
     Dosage: 12.5MG TWICE PER DAY
     Route: 048
     Dates: start: 20040601
  2. LASIX [Concomitant]
  3. DIOVAN [Concomitant]
  4. LIPITOR [Concomitant]
  5. COUMADIN [Concomitant]

REACTIONS (6)
  - BLOOD PRESSURE INCREASED [None]
  - COUGH [None]
  - DIZZINESS [None]
  - GAIT DISTURBANCE [None]
  - SOMNOLENCE [None]
  - SPEECH DISORDER [None]
